FAERS Safety Report 7021146-8 (Version None)
Quarter: 2010Q3

REPORT INFORMATION
  Report Type: 
  Country: None (occurrence: None)
  Receive Date: 20100929
  Receipt Date: 20100928
  Transmission Date: 20110219
  Serious: Yes (Hospitalization)
  Sender: FDA-Public Use
  Company Number: CA-ABBOTT-10P-028-0671553-00

PATIENT
  Sex: Male
  Weight: 92.5 kg

DRUGS (1)
  1. MAVIK [Suspect]
     Indication: ESSENTIAL HYPERTENSION
     Route: 048
     Dates: start: 20090827, end: 20100901

REACTIONS (1)
  - SUPRAVENTRICULAR TACHYARRHYTHMIA [None]
